FAERS Safety Report 7229721-2 (Version None)
Quarter: 2011Q1

REPORT INFORMATION
  Report Type: 
  Country: None (occurrence: None)
  Receive Date: 20110117
  Receipt Date: 20110112
  Transmission Date: 20110831
  Serious: Yes (Hospitalization)
  Sender: FDA-Public Use
  Company Number: DE-SANOFI-AVENTIS-2010SA076709

PATIENT
  Age: 42 Year
  Sex: Female
  Weight: 81 kg

DRUGS (15)
  1. CALCIMAGON [Concomitant]
     Indication: OSTEOPOROSIS PROPHYLAXIS
     Route: 048
     Dates: start: 20090101
  2. PANTOZOL [Concomitant]
     Route: 048
     Dates: start: 20100201
  3. TORSEMIDE [Concomitant]
     Route: 048
     Dates: start: 20090101
  4. ARAVA [Suspect]
     Indication: RHEUMATOID ARTHRITIS
     Route: 048
     Dates: start: 20090101, end: 20100430
  5. ARAVA [Suspect]
     Route: 048
     Dates: start: 20100512, end: 20100518
  6. PREDNISOLONE [Concomitant]
     Indication: RHEUMATOID ARTHRITIS
     Dosage: APPLICATION: 2 MG - 1 MG
     Route: 048
     Dates: start: 20090101
  7. GLIMEPIRIDE [Suspect]
     Indication: TYPE 2 DIABETES MELLITUS
     Route: 048
     Dates: start: 20080101, end: 20100511
  8. APSOMOL [Concomitant]
     Route: 055
     Dates: start: 20050101
  9. NALOXONE HYDROCHLORIDE/TILIDINE HYDROCHLORIDE [Concomitant]
     Dosage: 1 DF= 50 MG TILIDINE + 4 MG NALOXON
     Route: 048
     Dates: start: 20100401
  10. MAGNESIUM [Concomitant]
     Route: 048
     Dates: start: 20090101
  11. DICLOFENAC SODIUM [Suspect]
     Route: 048
     Dates: start: 20100512
  12. BYETTA [Suspect]
     Indication: TYPE 2 DIABETES MELLITUS
     Dosage: APPLICATION: 10 MCG - 0 MCG - 5 MCG
     Route: 058
     Dates: start: 20090101, end: 20100511
  13. FORTZAAR [Concomitant]
     Dosage: 1 DF= 100 MG LOSARTAN + 25 MG HYDROCHLOROTHIAZIDE
     Route: 048
     Dates: start: 20090101
  14. DICLOFENAC SODIUM [Suspect]
     Indication: RHEUMATOID ARTHRITIS
     Route: 048
     Dates: start: 20100201, end: 20100430
  15. ETANERCEPT [Suspect]
     Indication: RHEUMATOID ARTHRITIS
     Dosage: APPLICATION: 75 MG/WEEKLY = THUESDAY: 50 MG; FRIDAY: 25 MG
     Route: 058
     Dates: start: 20090101, end: 20100429

REACTIONS (1)
  - OEDEMATOUS PANCREATITIS [None]
